FAERS Safety Report 17517294 (Version 2)
Quarter: 2020Q1

REPORT INFORMATION
  Report Type: Report from Study
  Country: JP (occurrence: JP)
  Receive Date: 20200309
  Receipt Date: 20200309
  Transmission Date: 20200409
  Serious: Yes (Other)
  Sender: FDA-Public Use
  Company Number: JP-JNJFOC-20200300244

PATIENT

DRUGS (1)
  1. REMICADE [Suspect]
     Active Substance: INFLIXIMAB
     Indication: RHEUMATOID ARTHRITIS
     Dosage: DAY 1 (FIRST DOSE), AT WEEKS 2 AND 6 AT 3 MG/KG; FOLLOWING DURATION AT AN 8-WEEK INTERVAL.
     Route: 042

REACTIONS (16)
  - Pneumocystis jirovecii pneumonia [Unknown]
  - Nasopharyngitis [Unknown]
  - Duodenal perforation [Unknown]
  - Infusion related reaction [Unknown]
  - Tinea pedis [Unknown]
  - Pyelonephritis [Unknown]
  - Parotitis [Unknown]
  - Alanine aminotransferase increased [Unknown]
  - Bronchitis [Unknown]
  - Drug ineffective [Unknown]
  - Pharyngitis [Unknown]
  - Hepatic function abnormal [Unknown]
  - Pneumonia [Unknown]
  - Pyrexia [Unknown]
  - Eczema [Unknown]
  - Drug specific antibody [Unknown]
